APPROVED DRUG PRODUCT: HYDROMORPHONE HYDROCHLORIDE
Active Ingredient: HYDROMORPHONE HYDROCHLORIDE
Strength: 0.2MG/ML
Dosage Form/Route: INJECTABLE;INJECTION
Application: A216899 | Product #001 | TE Code: AP
Applicant: HIKMA PHARMACEUTICALS USA INC
Approved: Feb 9, 2024 | RLD: No | RS: No | Type: RX